FAERS Safety Report 22228597 (Version 1)
Quarter: 2023Q2

REPORT INFORMATION
  Report Type: Spontaneous
  Country: FR (occurrence: FR)
  Receive Date: 20230419
  Receipt Date: 20230419
  Transmission Date: 20230722
  Serious: Yes (Hospitalization)
  Sender: FDA-Public Use
  Company Number: FR-ROCHE-3329623

PATIENT
  Age: 67 Year
  Sex: Male

DRUGS (9)
  1. RITUXIMAB [Suspect]
     Active Substance: RITUXIMAB
     Indication: Lymphoma
     Route: 042
     Dates: start: 20221118
  2. METOCLOPRAMIDE [Suspect]
     Active Substance: METOCLOPRAMIDE
     Indication: Product used for unknown indication
     Route: 048
     Dates: start: 20221117, end: 20221128
  3. VALACYCLOVIR HYDROCHLORIDE [Suspect]
     Active Substance: VALACYCLOVIR HYDROCHLORIDE
     Indication: Antiviral prophylaxis
     Dosage: 1500 MG, 1X/DAY
     Route: 048
     Dates: start: 20221117
  4. AMITRIPTYLINE HYDROCHLORIDE [Suspect]
     Active Substance: AMITRIPTYLINE HYDROCHLORIDE
     Indication: Neuralgia
     Dosage: 5 MG, 1X/DAY
     Route: 048
     Dates: start: 20221121
  5. ONDANSETRON HYDROCHLORIDE [Suspect]
     Active Substance: ONDANSETRON HYDROCHLORIDE
     Indication: Prophylaxis of nausea and vomiting
     Route: 048
     Dates: start: 20221117
  6. ALLOPURINOL [Suspect]
     Active Substance: ALLOPURINOL
     Indication: Product used for unknown indication
     Dosage: 300 MG, 1X/DAY
     Route: 048
     Dates: start: 20221121, end: 20221127
  7. BENDAMUSTINE [Suspect]
     Active Substance: BENDAMUSTINE
     Indication: Lymphoma
     Route: 042
     Dates: start: 20221117
  8. BACTRIM [Suspect]
     Active Substance: SULFAMETHOXAZOLE\TRIMETHOPRIM
     Indication: Infection prophylaxis
     Dosage: 1 DF, ALTERNATE DAY
     Route: 048
     Dates: start: 20221118, end: 20221128
  9. OXYCONTIN [Suspect]
     Active Substance: OXYCODONE HYDROCHLORIDE
     Indication: Pain
     Dosage: 20 MG, 1X/DAY
     Route: 048
     Dates: start: 20221117

REACTIONS (1)
  - Rash maculo-papular [Recovering/Resolving]

NARRATIVE: CASE EVENT DATE: 20221127
